FAERS Safety Report 6054775-9 (Version None)
Quarter: 2009Q1

REPORT INFORMATION
  Report Type: 
  Country: None (occurrence: None)
  Receive Date: 20090128
  Receipt Date: 20090119
  Transmission Date: 20090719
  Serious: Yes (Other)
  Sender: FDA-Public Use
  Company Number: US-PFIZER INC-2009157374

PATIENT
  Sex: Male
  Weight: 127 kg

DRUGS (8)
  1. CELEBREX [Suspect]
     Indication: ARTHRITIS
  2. ARTHROTEC [Suspect]
     Indication: ARTHRITIS
     Dates: start: 20090117, end: 20090118
  3. VITAMIN E [Concomitant]
     Dosage: UNK
  4. ACETYLSALICYLIC ACID [Concomitant]
     Dosage: UNK
  5. LAMICTAL [Concomitant]
     Dosage: UNK
  6. DEPAKOTE [Concomitant]
     Dosage: UNK
  7. TRIAMTERENE AND HYDROCHLOROTHIAZIDE [Concomitant]
     Dosage: UNK
  8. PREVACID [Concomitant]
     Dosage: UNK

REACTIONS (5)
  - COELIAC DISEASE [None]
  - FALL [None]
  - JOINT INJURY [None]
  - LOWER LIMB FRACTURE [None]
  - SARCOMA [None]
